FAERS Safety Report 9672230 (Version 2)
Quarter: 2014Q1

REPORT INFORMATION
  Report Type: Spontaneous
  Country: GB (occurrence: None)
  Receive Date: 20131105
  Receipt Date: 20140218
  Transmission Date: 20141002
  Serious: Yes (Life-Threatening, Hospitalization)
  Sender: FDA-Public Use
  Company Number: FK201304834

PATIENT
  Age: 59 Year
  Sex: Female
  Weight: 100.8 kg

DRUGS (10)
  1. METHOTREXATE [Suspect]
     Indication: RHEUMATOID ARTHRITIS
     Route: 030
     Dates: start: 20130701, end: 20131011
  2. AMITRIPTYLINE (AMITRIPTYLINE) [Concomitant]
  3. CITALOPRAM (CITALOPRAM) [Concomitant]
  4. ETORICOXIB (ETORICOXIB) [Concomitant]
  5. LANSOPRAZOLE (LANSOPRAZOLE) [Concomitant]
  6. FOLIC ACID (FOLIC ACID) [Concomitant]
  7. LEVOTHYROXINE (LEVOTHYROXINE) [Concomitant]
  8. METFORMIN (METFORMIN) [Concomitant]
  9. SIMVASTATIN (SIMVASTATIN) [Concomitant]
  10. TRAMADOL (TRAMADOL) [Concomitant]

REACTIONS (2)
  - Exercise tolerance decreased [None]
  - Interstitial lung disease [None]
